FAERS Safety Report 18020769 (Version 1)
Quarter: 2020Q3

REPORT INFORMATION
  Report Type: Report from Study
  Country: None (occurrence: US)
  Receive Date: 20200714
  Receipt Date: 20200714
  Transmission Date: 20201103
  Serious: Yes (Other)
  Sender: FDA-Public Use
  Company Number: US-ABBVIE-20K-163-3481245-00

PATIENT
  Sex: Male

DRUGS (1)
  1. CREON [Suspect]
     Active Substance: PANCRELIPASE AMYLASE\PANCRELIPASE LIPASE\PANCRELIPASE PROTEASE
     Indication: PRODUCT USED FOR UNKNOWN INDICATION
     Dosage: 2 CAPS WITH MEALS, 1 CAP WITH SNACKS
     Route: 048

REACTIONS (5)
  - Pancreatic carcinoma [Unknown]
  - Abdominal distension [Unknown]
  - Abdominal pain [Unknown]
  - Weight decreased [Unknown]
  - Flatulence [Unknown]

NARRATIVE: CASE EVENT DATE: 2019
